FAERS Safety Report 7798311-5 (Version None)
Quarter: 2011Q4

REPORT INFORMATION
  Report Type: 
  Country: None (occurrence: None)
  Receive Date: 20111005
  Receipt Date: 20110927
  Transmission Date: 20120403
  Serious: Yes (Hospitalization, Other)
  Sender: FDA-Public Use
  Company Number: PHEH2010US03417

PATIENT
  Sex: Female
  Weight: 59.864 kg

DRUGS (27)
  1. ANTIBIOTICS [Concomitant]
     Route: 042
  2. ALPRAZOLAM [Concomitant]
  3. PERCOCET [Concomitant]
  4. CELEBREX [Concomitant]
  5. MULTI-VITAMINS [Concomitant]
  6. FEMARA [Concomitant]
  7. MORPHINE [Concomitant]
  8. PREVACID [Concomitant]
  9. PHENERGAN [Concomitant]
  10. CITRACAL [Concomitant]
  11. OMEPRAZOLE [Concomitant]
  12. BENZODIAZEPINES [Suspect]
  13. FLAGYL [Concomitant]
  14. AREDIA [Suspect]
  15. ZOMETA [Suspect]
  16. COLACE [Concomitant]
  17. ASPIRIN [Concomitant]
  18. HYDROCODONE BITARTRATE [Concomitant]
  19. ATIVAN [Concomitant]
  20. ROXICET [Concomitant]
  21. ANCEF [Concomitant]
  22. MELOXICAM [Concomitant]
  23. CALCIUM CARBONATE [Concomitant]
  24. HALDOL [Concomitant]
  25. ZOLOFT [Concomitant]
  26. LEXAPRO [Concomitant]
     Route: 048
  27. FENTANYL [Concomitant]

REACTIONS (72)
  - METASTASES TO SPINE [None]
  - OSTEONECROSIS OF JAW [None]
  - ORAL DISORDER [None]
  - CONFUSIONAL STATE [None]
  - REACTIVE PSYCHOSIS [None]
  - TOOTH LOSS [None]
  - MITRAL VALVE INCOMPETENCE [None]
  - ARTERIOSCLEROSIS [None]
  - NEUROPATHY PERIPHERAL [None]
  - BONE NEOPLASM MALIGNANT [None]
  - INJURY [None]
  - PAIN [None]
  - OSTEORADIONECROSIS [None]
  - GASTROOESOPHAGEAL REFLUX DISEASE [None]
  - MASTICATION DISORDER [None]
  - DYSPHAGIA [None]
  - WEIGHT DECREASED [None]
  - SPINAL OSTEOARTHRITIS [None]
  - LUNG INFILTRATION [None]
  - DENTURE WEARER [None]
  - BILIARY DILATATION [None]
  - BREAST CANCER [None]
  - BONE PAIN [None]
  - ARTHRITIS [None]
  - OSTEITIS [None]
  - IMPAIRED HEALING [None]
  - PANIC DISORDER [None]
  - SWELLING [None]
  - LUNG DISORDER [None]
  - COMPRESSION FRACTURE [None]
  - PANCYTOPENIA [None]
  - ELECTROCARDIOGRAM T WAVE INVERSION [None]
  - FATIGUE [None]
  - PLEURAL EFFUSION [None]
  - METASTASES TO BONE [None]
  - ANHEDONIA [None]
  - DISABILITY [None]
  - OSTEOARTHRITIS [None]
  - PAIN IN JAW [None]
  - BONE LESION [None]
  - PATHOLOGICAL FRACTURE [None]
  - PERICARDIAL EFFUSION [None]
  - DYSPNOEA [None]
  - ERYTHEMA [None]
  - GINGIVITIS [None]
  - RASH [None]
  - PSEUDOMONAL BACTERAEMIA [None]
  - HALLUCINATION [None]
  - DRUG WITHDRAWAL SYNDROME [None]
  - DENTAL PLAQUE [None]
  - UPPER RESPIRATORY TRACT INFECTION [None]
  - ADJUSTMENT DISORDER [None]
  - TRICUSPID VALVE INCOMPETENCE [None]
  - PERICARDITIS [None]
  - DEPRESSION [None]
  - PYREXIA [None]
  - OSTEOMYELITIS [None]
  - EXPOSED BONE IN JAW [None]
  - AFFECTIVE DISORDER [None]
  - ANAEMIA [None]
  - ATELECTASIS [None]
  - FIBROSIS [None]
  - LUNG NEOPLASM [None]
  - ABDOMINAL PAIN [None]
  - ANXIETY [None]
  - IRON DEFICIENCY ANAEMIA [None]
  - INSOMNIA [None]
  - IMPULSIVE BEHAVIOUR [None]
  - PARANOIA [None]
  - OSTEOLYSIS [None]
  - CHEST DISCOMFORT [None]
  - CELLULITIS [None]
